FAERS Safety Report 11521041 (Version 2)
Quarter: 2017Q3

REPORT INFORMATION
  Report Type: Spontaneous
  Country: TR (occurrence: TR)
  Receive Date: 20150918
  Receipt Date: 20170920
  Transmission Date: 20171127
  Serious: Yes (Other)
  Sender: FDA-Public Use
  Company Number: TR-SUN PHARMACEUTICAL INDUSTRIES LTD-2015RR-103273

PATIENT
  Age: 55 Year
  Sex: Male

DRUGS (2)
  1. WARFARIN [Suspect]
     Active Substance: WARFARIN
     Indication: CARDIAC VENTRICULAR THROMBOSIS
     Dosage: UNK
     Route: 065
  2. ACETYLSALICYLIC ACID [Suspect]
     Active Substance: ASPIRIN
     Indication: CARDIAC VENTRICULAR THROMBOSIS
     Dosage: UNK
     Route: 065

REACTIONS (2)
  - Gastric haemorrhage [Recovered/Resolved]
  - Treatment noncompliance [Unknown]
